FAERS Safety Report 6112065-X (Version None)
Quarter: 2009Q1

REPORT INFORMATION
  Report Type: 
  Country: None (occurrence: None)
  Receive Date: 20090311
  Receipt Date: 20090227
  Transmission Date: 20090719
  Serious: Yes (Hospitalization, Other)
  Sender: FDA-Public Use
  Company Number: FR-PFIZER INC-2009177509

PATIENT

DRUGS (1)
  1. LYRICA [Suspect]
     Indication: NEUROFIBROMATOSIS
     Dosage: UNK

REACTIONS (4)
  - CONFUSIONAL STATE [None]
  - CONVULSION [None]
  - CROHN'S DISEASE [None]
  - LOSS OF CONSCIOUSNESS [None]
